FAERS Safety Report 11871234 (Version 1)
Quarter: 2015Q4

REPORT INFORMATION
  Report Type: Spontaneous
  Country: BR (occurrence: BR)
  Receive Date: 20151228
  Receipt Date: 20151228
  Transmission Date: 20160305
  Serious: Yes (Hospitalization)
  Sender: FDA-Public Use
  Company Number: BR-IPCA LABORATORIES LIMITED-IPC201512-000872

PATIENT
  Age: 33 Year
  Sex: Male

DRUGS (3)
  1. NIMESULIDE [Suspect]
     Active Substance: NIMESULIDE
  2. ALLOPURINOL. [Suspect]
     Active Substance: ALLOPURINOL
  3. CHLORTHALIDONE. [Suspect]
     Active Substance: CHLORTHALIDONE

REACTIONS (1)
  - Drug reaction with eosinophilia and systemic symptoms [Unknown]
